FAERS Safety Report 24561868 (Version 1)
Quarter: 2024Q4

REPORT INFORMATION
  Report Type: Spontaneous
  Country: CA (occurrence: CA)
  Receive Date: 20241029
  Receipt Date: 20241029
  Transmission Date: 20250115
  Serious: Yes (Life-Threatening, Hospitalization, Other)
  Sender: TEVA
  Company Number: CA-TEVA-VS-3256988

PATIENT
  Age: 34 Year
  Sex: Male

DRUGS (5)
  1. CISPLATIN [Suspect]
     Active Substance: CISPLATIN
     Indication: Haematological malignancy
     Dosage: TIME INTERVAL: CYCLICAL
     Route: 042
  2. GEMCITABINE [Suspect]
     Active Substance: GEMCITABINE
     Indication: Haematological malignancy
     Dosage: TIME INTERVAL: CYCLICAL: DOSE FORM: NOT SPECIFIED
     Route: 042
  3. DEXAMETHASONE [Suspect]
     Active Substance: DEXAMETHASONE
     Indication: Haematological malignancy
     Dosage: TIME INTERVAL: CYCLICAL
     Route: 048
  4. RIZATRIPTAN [Concomitant]
     Active Substance: RIZATRIPTAN
     Indication: Product used for unknown indication
     Dosage: DOSE FORM: NOT SPECIFIED
     Route: 065
  5. LANSOPRAZOLE [Concomitant]
     Active Substance: LANSOPRAZOLE
     Indication: Product used for unknown indication
     Dosage: DOSE FORM: CAPSULE, DELAYED RELEASE
     Route: 065

REACTIONS (4)
  - Muscular weakness [Unknown]
  - Confusional state [Unknown]
  - Cerebrovascular accident [Unknown]
  - Aphasia [Unknown]
